FAERS Safety Report 5594060-2 (Version None)
Quarter: 2008Q1

REPORT INFORMATION
  Report Type: 
  Country: None (occurrence: None)
  Receive Date: 20080116
  Receipt Date: 20080102
  Transmission Date: 20080703
  Serious: Yes (Death, Hospitalization)
  Sender: FDA-Public Use
  Company Number: DK-GENENTECH-251954

PATIENT
  Sex: Female

DRUGS (11)
  1. BEVACIZUMAB [Suspect]
     Indication: GASTROINTESTINAL CARCINOMA
     Dosage: 450 MG, Q2W
     Route: 042
     Dates: start: 20070910, end: 20071119
  2. ERLOTINIB [Suspect]
     Indication: GASTROINTESTINAL CARCINOMA
     Dosage: 150 MG, QD
     Route: 048
     Dates: start: 20070910, end: 20071119
  3. MORPHINE [Concomitant]
     Indication: DRUG USE FOR UNKNOWN INDICATION
  4. MEGACE [Concomitant]
     Indication: DRUG USE FOR UNKNOWN INDICATION
  5. PANTOLOC [Concomitant]
     Indication: DYSPEPSIA
  6. IMODIUM [Concomitant]
     Indication: DRUG USE FOR UNKNOWN INDICATION
     Dates: start: 20070910
  7. BRUFEN [Concomitant]
     Indication: DRUG USE FOR UNKNOWN INDICATION
     Dates: start: 20071115
  8. MYCOSTATIN [Concomitant]
     Indication: DRUG USE FOR UNKNOWN INDICATION
     Dates: start: 20071115
  9. IMOZOP [Concomitant]
     Indication: DRUG USE FOR UNKNOWN INDICATION
     Dates: start: 20071118
  10. MOVICOL [Concomitant]
     Indication: DRUG USE FOR UNKNOWN INDICATION
     Dates: start: 20071118
  11. PRIMPERAN INJ [Concomitant]
     Indication: DRUG USE FOR UNKNOWN INDICATION
     Dates: start: 20071118

REACTIONS (5)
  - CONDITION AGGRAVATED [None]
  - DEATH [None]
  - GASTROINTESTINAL HAEMORRHAGE [None]
  - HAEMOGLOBIN DECREASED [None]
  - HYPERGLYCAEMIA [None]
